FAERS Safety Report 6781384-6 (Version None)
Quarter: 2010Q2

REPORT INFORMATION
  Report Type: 
  Country: None (occurrence: None)
  Receive Date: 20100621
  Receipt Date: 20091119
  Transmission Date: 20101027
  Serious: No
  Sender: FDA-Public Use
  Company Number: US-AMGEN-KDL375693

PATIENT
  Sex: Female

DRUGS (1)
  1. ARANESP [Suspect]
     Indication: RENAL FAILURE CHRONIC
     Dates: start: 20060501

REACTIONS (7)
  - ASTHENIA [None]
  - BLOOD COUNT ABNORMAL [None]
  - FATIGUE [None]
  - MALAISE [None]
  - MEDICAL DEVICE CHANGE [None]
  - MEDICAL DEVICE PAIN [None]
  - SOMNOLENCE [None]
